FAERS Safety Report 8795806 (Version 1)
Quarter: 2012Q4

REPORT INFORMATION
  Report Type: 
  Country: JP (occurrence: JP)
  Receive Date: 20120920
  Receipt Date: 20120920
  Transmission Date: 20130627
  Serious: Yes (Other)
  Sender: FDA-Public Use
  Company Number: JP-PFIZER INC-2012168177

PATIENT
  Age: 37 Year
  Sex: Male
  Weight: 82.2 kg

DRUGS (1)
  1. CHAMPIX [Suspect]
     Indication: SMOKING CESSATION THERAPY
     Dosage: UNK
     Route: 048
     Dates: start: 20120628

REACTIONS (2)
  - Hallucination, auditory [Recovered/Resolved]
  - Anxiety [Recovered/Resolved]
